FAERS Safety Report 5157333-3 (Version None)
Quarter: 2006Q4

REPORT INFORMATION
  Report Type: 
  Country: None (occurrence: None)
  Receive Date: 20061116
  Receipt Date: 20061101
  Transmission Date: 20070319
  Serious: Yes (Other)
  Sender: FDA-Public Use
  Company Number: 2006139547

PATIENT
  Age: 61 Year
  Sex: Female

DRUGS (1)
  1. BEXTRA [Suspect]
     Dosage: (1 IN 1 D)
     Dates: start: 20020725

REACTIONS (2)
  - CEREBROVASCULAR ACCIDENT [None]
  - MUSCULAR WEAKNESS [None]
